FAERS Safety Report 8374685-1 (Version None)
Quarter: 2012Q2

REPORT INFORMATION
  Report Type: 
  Country: None (occurrence: None)
  Receive Date: 20120521
  Receipt Date: 20110318
  Transmission Date: 20120825
  Serious: No
  Sender: FDA-Public Use
  Company Number: US-ASTRAZENECA-2011SE21447

PATIENT
  Sex: Female

DRUGS (3)
  1. PRILOSEC OTC [Suspect]
     Dosage: 1-2 TABLETS 1-2 A DAY
     Route: 048
  2. GLUCOPHAGE [Concomitant]
     Dosage: UNKNOWN
  3. SYNTHROID [Concomitant]
     Dosage: UNKNOWN

REACTIONS (6)
  - COUGH [None]
  - DRY THROAT [None]
  - NAUSEA [None]
  - THROAT IRRITATION [None]
  - CARDIAC FLUTTER [None]
  - INAPPROPRIATE SCHEDULE OF DRUG ADMINISTRATION [None]
